FAERS Safety Report 11441008 (Version 1)
Quarter: 2015Q3

REPORT INFORMATION
  Report Type: Spontaneous
  Country: US (occurrence: None)
  Receive Date: 20150831
  Receipt Date: 20150831
  Transmission Date: 20151125
  Serious: Yes (Hospitalization)
  Sender: FDA-Public Use
  Company Number: None

PATIENT
  Age: 9 Month
  Weight: 70.31 kg

DRUGS (1)
  1. DOXYCYCLINE. [Suspect]
     Active Substance: DOXYCYCLINE
     Indication: BRONCHITIS
     Dosage: TAKEN BY MOUTH
     Dates: start: 20150810, end: 20150817

REACTIONS (2)
  - Foreign body [None]
  - Oesophageal ulcer [None]

NARRATIVE: CASE EVENT DATE: 20150812
